FAERS Safety Report 8117913-X (Version None)
Quarter: 2012Q1

REPORT INFORMATION
  Report Type: 
  Country: None (occurrence: None)
  Receive Date: 20120131
  Receipt Date: 20120118
  Transmission Date: 20120608
  Serious: Yes (Life-Threatening)
  Sender: FDA-Public Use
  Company Number: DSM-2011-00867

PATIENT
  Age: 60 Year
  Sex: Female

DRUGS (2)
  1. ALTEIS DUO(HYDROCHLOROTHIAZIDE, OLMESARTAN MEDOXOMIL)(TABLET)(HYDROCHL [Suspect]
     Indication: HYPERTENSION
     Dosage: UNKNOWN DOSE OF OLMESARTAN MEDOXOMIL/12.5 MG HYDROCHLOROTHIAZIDE (1 DOSAGE FORMS, 1  IN 1D), ORAL
     Route: 048
     Dates: end: 20110715
  2. LEVOTHYROXINE SODIUM [Concomitant]

REACTIONS (9)
  - HYPONATRAEMIA [None]
  - NAUSEA [None]
  - VOMITING [None]
  - HYPOKALAEMIA [None]
  - FALL [None]
  - AGITATION [None]
  - ALTERED STATE OF CONSCIOUSNESS [None]
  - CONVULSION [None]
  - MOBILITY DECREASED [None]
